FAERS Safety Report 11651450 (Version 1)
Quarter: 2015Q4

REPORT INFORMATION
  Report Type: Report from Study
  Country: MX (occurrence: MX)
  Receive Date: 20151022
  Receipt Date: 20151022
  Transmission Date: 20160304
  Serious: Yes (Hospitalization, Other)
  Sender: FDA-Public Use
  Company Number: MX-ORION CORPORATION ORION PHARMA-ENTC2015-0595

PATIENT
  Sex: Male

DRUGS (6)
  1. STALEVO [Suspect]
     Active Substance: CARBIDOPA\ENTACAPONE\LEVODOPA
     Indication: PARKINSON^S DISEASE
     Dosage: STRENGTH: 200/50/200
     Route: 065
     Dates: end: 20151011
  2. SIFROL [Concomitant]
     Active Substance: PRAMIPEXOLE
     Route: 065
  3. KETOROLACO [Concomitant]
     Route: 065
  4. ENALAPRIL [Concomitant]
     Active Substance: ENALAPRIL
     Route: 065
  5. IMPLICANE [Concomitant]
     Route: 065
  6. MINITRAN [Concomitant]
     Active Substance: NITROGLYCERIN
     Route: 065

REACTIONS (6)
  - Visual impairment [Unknown]
  - Malaise [Unknown]
  - Fall [Unknown]
  - Contusion [Unknown]
  - Wrong technique in product usage process [Recovered/Resolved]
  - Infarction [Unknown]
